FAERS Safety Report 7823881-8 (Version None)
Quarter: 2011Q4

REPORT INFORMATION
  Report Type: 
  Country: None (occurrence: None)
  Receive Date: 20111019
  Receipt Date: 20111010
  Transmission Date: 20120403
  Serious: Yes (Hospitalization, Other)
  Sender: FDA-Public Use
  Company Number: GB-ASTRAZENECA-2010SE25932

PATIENT
  Age: 798 Month
  Sex: Female

DRUGS (2)
  1. PLACEBO [Suspect]
     Indication: OSTEOPOROSIS PROPHYLAXIS
     Dosage: ONCE A WEEK
     Route: 048
  2. ARIMIDEX [Suspect]
     Indication: NEOPLASM PROPHYLAXIS
     Route: 048

REACTIONS (2)
  - MUSCULOSKELETAL STIFFNESS [None]
  - PAIN IN EXTREMITY [None]
